FAERS Safety Report 17172425 (Version 1)
Quarter: 2019Q4

REPORT INFORMATION
  Report Type: Report from Study
  Country: IT (occurrence: IT)
  Receive Date: 20191219
  Receipt Date: 20191219
  Transmission Date: 20200122
  Serious: Yes (Other)
  Sender: FDA-Public Use
  Company Number: IT-PFIZER INC-2019542484

PATIENT
  Age: 41 Year
  Sex: Male

DRUGS (4)
  1. FELISON [Suspect]
     Active Substance: FLURAZEPAM MONOHYDROCHLORIDE
     Indication: DRUG ABUSE
     Dosage: 120 MG, TOTAL
     Route: 048
     Dates: start: 20191017, end: 20191017
  2. TAVOR (LORAZEPAM) [Suspect]
     Active Substance: LORAZEPAM
     Indication: DRUG ABUSE
     Dosage: 50 MG, SINGLE
     Route: 048
     Dates: start: 20191017, end: 20191017
  3. TAVOR (LORAZEPAM) [Suspect]
     Active Substance: LORAZEPAM
     Indication: INTENTIONAL PRODUCT MISUSE
  4. INVEGA [Suspect]
     Active Substance: PALIPERIDONE
     Indication: DRUG ABUSE
     Dosage: 12 MG, SINGLE
     Route: 048
     Dates: start: 20191017, end: 20191017

REACTIONS (4)
  - Intentional self-injury [Recovering/Resolving]
  - Speech disorder [Recovering/Resolving]
  - Dysarthria [Recovering/Resolving]
  - Hypokinesia [Recovering/Resolving]

NARRATIVE: CASE EVENT DATE: 20191017
